FAERS Safety Report 6024991-0 (Version None)
Quarter: 2008Q4

REPORT INFORMATION
  Report Type: 
  Country: None (occurrence: None)
  Receive Date: 20081231
  Receipt Date: 20081223
  Transmission Date: 20090506
  Serious: Yes (Death)
  Sender: FDA-Public Use
  Company Number: ZA-AVENTIS-200821630GDDC

PATIENT
  Age: 39 Year
  Sex: Female

DRUGS (6)
  1. TAXOTERE [Suspect]
     Indication: BREAST CANCER
     Route: 042
     Dates: start: 20081126, end: 20081126
  2. DECASONE                           /00016001/ [Suspect]
     Route: 041
     Dates: start: 20081126
  3. BETANOID [Concomitant]
     Route: 048
     Dates: start: 20081126, end: 20081129
  4. PHENERGAN HCL [Concomitant]
     Route: 041
     Dates: start: 20081126
  5. ZANTAC [Concomitant]
     Route: 041
     Dates: start: 20081126
  6. EMEND [Concomitant]
     Route: 048
     Dates: start: 20081126, end: 20081129

REACTIONS (3)
  - ABDOMINAL PAIN LOWER [None]
  - INFECTION [None]
  - INTESTINAL PERFORATION [None]
